FAERS Safety Report 23019844 (Version 2)
Quarter: 2023Q4

REPORT INFORMATION
  Report Type: Spontaneous
  Country: US (occurrence: US)
  Receive Date: 20231003
  Receipt Date: 20231013
  Transmission Date: 20240110
  Serious: Yes (Disabling, Other)
  Sender: FDA-Public Use
  Company Number: US-REGENERON PHARMACEUTICALS, INC.-2023-107351

PATIENT
  Sex: Female

DRUGS (1)
  1. EYLEA [Suspect]
     Active Substance: AFLIBERCEPT
     Indication: Neovascular age-related macular degeneration
     Dosage: 2 MG, (0.05 ML) EVERY 10-12 WEEKS, INTO RIGHT EYE, STRENGTH: 2.0 MG/0.05 ML, FORMULATION: PFS (GERRE

REACTIONS (3)
  - Blindness unilateral [Unknown]
  - Non-infectious endophthalmitis [Unknown]
  - Visual acuity reduced [Unknown]

NARRATIVE: CASE EVENT DATE: 20230724
